FAERS Safety Report 7526773-7 (Version None)
Quarter: 2011Q2

REPORT INFORMATION
  Report Type: 
  Country: None (occurrence: None)
  Receive Date: 20110606
  Receipt Date: 20110531
  Transmission Date: 20111010
  Serious: Yes (Hospitalization)
  Sender: FDA-Public Use
  Company Number: CN-PFIZER INC-2011116775

PATIENT
  Age: 69 Year
  Sex: Female

DRUGS (4)
  1. GLIPIZIDE [Suspect]
  2. GLICLAZIDE [Suspect]
     Dosage: 80 MG, 2X/DAY
     Route: 048
     Dates: end: 20090206
  3. ASPIRIN [Suspect]
     Dosage: .1 G, 1X/DAY
     Route: 048
  4. METOPROLOL [Suspect]
     Dosage: UNK

REACTIONS (3)
  - DRUG INTERACTION [None]
  - HYPOGLYCAEMIA [None]
  - HYPOGLYCAEMIC COMA [None]
